FAERS Safety Report 15070347 (Version 1)
Quarter: 2018Q2

REPORT INFORMATION
  Report Type: Spontaneous
  Country: US (occurrence: US)
  Receive Date: 20180626
  Receipt Date: 20180626
  Transmission Date: 20180711
  Serious: No
  Sender: FDA-Public Use
  Company Number: US-AMGEN-USASL2015074639

PATIENT
  Age: 76 Year
  Sex: Female

DRUGS (1)
  1. PROLIA [Suspect]
     Active Substance: DENOSUMAB
     Indication: PRODUCT USED FOR UNKNOWN INDICATION
     Dosage: UNK
     Route: 065

REACTIONS (11)
  - Feeling abnormal [Recovered/Resolved]
  - Foot operation [Unknown]
  - Mobility decreased [Unknown]
  - Fibromyalgia [Unknown]
  - Amnesia [Unknown]
  - Pain [Unknown]
  - Arthritis [Unknown]
  - Unevaluable event [Unknown]
  - Malaise [Recovered/Resolved]
  - Impaired healing [Unknown]
  - Swelling [Unknown]

NARRATIVE: CASE EVENT DATE: 20150527
